FAERS Safety Report 20966119 (Version 5)
Quarter: 2024Q1

REPORT INFORMATION
  Report Type: Other
  Country: CA (occurrence: CA)
  Receive Date: 20220616
  Receipt Date: 20240207
  Transmission Date: 20240410
  Serious: Yes (Hospitalization, Other)
  Sender: FDA-Public Use
  Company Number: CA-ROCHE-2089217

PATIENT
  Age: 51 Year
  Sex: Female

DRUGS (9)
  1. OCREVUS [Suspect]
     Active Substance: OCRELIZUMAB
     Indication: Relapsing-remitting multiple sclerosis
     Dosage: 300 MG AT DAY 0 AND 14, THEN 600 MG EVERY 6 MONTHS
     Route: 042
     Dates: start: 20180309
  2. SODIUM CHLORIDE [Concomitant]
     Active Substance: SODIUM CHLORIDE
  3. MAGNESIUM [Concomitant]
     Active Substance: MAGNESIUM
  4. POTASSIUM [Concomitant]
     Active Substance: POTASSIUM
  5. OMEGA 3 [Concomitant]
     Active Substance: CAPSAICIN
  6. OMEGA 9 FATTY ACIDS [Concomitant]
  7. BENADRYL [Concomitant]
     Active Substance: DIPHENHYDRAMINE HYDROCHLORIDE
  8. FLOVENT [Concomitant]
     Active Substance: FLUTICASONE PROPIONATE
  9. VENTOLIN [Concomitant]
     Active Substance: ALBUTEROL SULFATE

REACTIONS (18)
  - COVID-19 [Recovering/Resolving]
  - Pneumonia [Recovering/Resolving]
  - Vulva cyst [Not Recovered/Not Resolved]
  - Cyst [Recovering/Resolving]
  - Osteoarthritis [Not Recovered/Not Resolved]
  - Infusion related reaction [Recovered/Resolved]
  - Pollakiuria [Not Recovered/Not Resolved]
  - Fatigue [Recovered/Resolved]
  - Insomnia [Not Recovered/Not Resolved]
  - Libido decreased [Not Recovered/Not Resolved]
  - Weight increased [Not Recovered/Not Resolved]
  - Erythema [Recovered/Resolved]
  - Rash [Recovered/Resolved]
  - Skin plaque [Recovered/Resolved]
  - Immunodeficiency [Recovered/Resolved]
  - Inflammation [Recovered/Resolved]
  - Influenza [Recovered/Resolved]
  - Migraine [Recovered/Resolved]

NARRATIVE: CASE EVENT DATE: 20180309
